FAERS Safety Report 11636178 (Version 1)
Quarter: 2015Q4

REPORT INFORMATION
  Report Type: Spontaneous
  Country: US (occurrence: US)
  Receive Date: 20151016
  Receipt Date: 20151016
  Transmission Date: 20160304
  Serious: Yes (Hospitalization)
  Sender: FDA-Public Use
  Company Number: US-DRREDDYS-USA/USA/15/0053331

PATIENT
  Age: 65 Year
  Sex: Male

DRUGS (2)
  1. RISPERIDONE TABLETS [Suspect]
     Active Substance: RISPERIDONE
     Indication: SCHIZOPHRENIA, PARANOID TYPE
     Route: 048
  2. CLONAZEPAM. [Concomitant]
     Active Substance: CLONAZEPAM
     Indication: SCHIZOPHRENIA, PARANOID TYPE
     Route: 065

REACTIONS (4)
  - Stridor [Recovering/Resolving]
  - Throat tightness [Unknown]
  - Spasmodic dysphonia [Unknown]
  - Tachycardia [Unknown]
